FAERS Safety Report 8942296 (Version 1)
Quarter: 2012Q4

REPORT INFORMATION
  Report Type: Spontaneous
  Country: US (occurrence: None)
  Receive Date: 20121123
  Receipt Date: 20121123
  Transmission Date: 20130627
  Serious: Yes (Other)
  Sender: FDA-Public Use
  Company Number: US-010166

PATIENT
  Age: 51 Year
  Sex: Female

DRUGS (4)
  1. HUMAN GROWTH HORMONE 20K [Suspect]
     Indication: HORMONE THERAPY
     Route: 058
  2. TESTOSTERONE [Concomitant]
  3. PROGESTERONE [Concomitant]
  4. ESTROGEN [Concomitant]

REACTIONS (2)
  - Malignant melanoma [None]
  - Off label use [None]
